FAERS Safety Report 7531222-9 (Version None)
Quarter: 2011Q2

REPORT INFORMATION
  Report Type: 
  Country: None (occurrence: None)
  Receive Date: 20110531
  Receipt Date: 20110520
  Transmission Date: 20111010
  Serious: Yes (Hospitalization)
  Sender: FDA-Public Use
  Company Number: 2011SP023413

PATIENT
  Age: 89 Year
  Sex: Male

DRUGS (1)
  1. MIRTAZAPINE [Suspect]
     Indication: MAJOR DEPRESSION
     Dosage: 15 MG;QPM;PO
     Route: 048
     Dates: start: 20110404, end: 20110406

REACTIONS (7)
  - DYSSTASIA [None]
  - SUBDURAL HAEMATOMA [None]
  - HYPOPHAGIA [None]
  - CONFUSIONAL STATE [None]
  - FALL [None]
  - CEREBRAL HAEMORRHAGE [None]
  - DEHYDRATION [None]
